FAERS Safety Report 18119303 (Version 4)
Quarter: 2020Q3

REPORT INFORMATION
  Report Type: Report from Study
  Country: US (occurrence: US)
  Receive Date: 20200806
  Receipt Date: 20200917
  Transmission Date: 20201103
  Serious: Yes (Death)
  Sender: FDA-Public Use
  Company Number: US-PFIZER INC-2020295340

PATIENT
  Age: 2 Year
  Sex: Female

DRUGS (30)
  1. CRIZOTINIB [Suspect]
     Active Substance: CRIZOTINIB
     Indication: NEOPLASM MALIGNANT
     Dosage: LAST ADMINISTERED DATE
     Dates: end: 20200706
  2. VP?16 [Suspect]
     Active Substance: ETOPOSIDE
     Dosage: LAST ADMINISTERED DATE
     Dates: end: 20200329
  3. MESNA. [Suspect]
     Active Substance: MESNA
     Dosage: 3750 MG, PER ROADMAP
     Dates: start: 20200709, end: 20200712
  4. VINCRISTINE SULFATE. [Suspect]
     Active Substance: VINCRISTINE SULFATE
     Dosage: LAST ADMINISTERED DATE
     Dates: end: 20200228
  5. VINCRISTINE SULFATE. [Suspect]
     Active Substance: VINCRISTINE SULFATE
     Dosage: PER ROADMAP
     Dates: start: 20200228, end: 20200228
  6. ZINECARD [Suspect]
     Active Substance: DEXRAZOXANE HYDROCHLORIDE
     Dosage: LAST ADMINISTERED DATE
     Dates: end: 20200229
  7. G?CSF [Suspect]
     Active Substance: GRANULOCYTE COLONY-STIMULATING FACTOR NOS
     Indication: MYELOSUPPRESSION
     Dosage: FIRST COURSE
     Dates: start: 20191217
  8. G?CSF [Suspect]
     Active Substance: GRANULOCYTE COLONY-STIMULATING FACTOR NOS
     Dosage: 50 MCG, PER ROADMAP
     Dates: start: 20200714, end: 20200715
  9. CRIZOTINIB [Suspect]
     Active Substance: CRIZOTINIB
     Indication: NEUROBLASTOMA
     Dosage: FIRST COURSE
     Dates: start: 20191217
  10. DOXORUBICIN HCL [Suspect]
     Active Substance: DOXORUBICIN HYDROCHLORIDE
     Dosage: PER ROADMAP
     Dates: start: 20200228, end: 20200229
  11. CISPLATIN. [Suspect]
     Active Substance: CISPLATIN
     Indication: NEOPLASM MALIGNANT
     Dosage: FIRST COURSE
     Dates: start: 20191217
  12. VP?16 [Suspect]
     Active Substance: ETOPOSIDE
     Dosage: PER ROADMAP
     Dates: start: 20200205, end: 20200329
  13. CYCLOPHOSPHAMIDE. [Suspect]
     Active Substance: CYCLOPHOSPHAMIDE
     Dosage: 3000 MG, PER ROADMAP
     Dates: start: 20200709, end: 20200712
  14. THIOTEPA. [Suspect]
     Active Substance: THIOTEPA
     Dosage: 600 MG, TOTAL DOSE ADMINISTERED THIS COURSE
     Dates: end: 20200712
  15. VINCRISTINE SULFATE. [Suspect]
     Active Substance: VINCRISTINE SULFATE
     Indication: NEOPLASM MALIGNANT
     Dosage: FIRST COURSE
     Dates: start: 20191217
  16. CYCLOPHOSPHAMIDE. [Suspect]
     Active Substance: CYCLOPHOSPHAMIDE
     Indication: NEOPLASM MALIGNANT
     Dosage: FIRST COURSE
     Dates: start: 20191217
  17. ZINECARD [Suspect]
     Active Substance: DEXRAZOXANE HYDROCHLORIDE
     Indication: PROPHYLAXIS
     Dosage: FIRST COURSE
     Dates: start: 20191217
  18. ZINECARD [Suspect]
     Active Substance: DEXRAZOXANE HYDROCHLORIDE
     Dosage: PER ROADMAP
     Dates: start: 20200228, end: 20200229
  19. THIOTEPA. [Suspect]
     Active Substance: THIOTEPA
     Dosage: 600 MG, PER ROADMAP
     Dates: start: 20200707, end: 20200712
  20. CISPLATIN. [Suspect]
     Active Substance: CISPLATIN
     Dosage: LAST ADMINISTERED DATE
     Dates: end: 20200329
  21. CISPLATIN. [Suspect]
     Active Substance: CISPLATIN
     Dosage: PER ROADMAP
     Dates: start: 20200113, end: 20200329
  22. MESNA. [Suspect]
     Active Substance: MESNA
     Indication: PROPHYLAXIS
     Dosage: FIRST DOSE
     Dates: start: 20191217
  23. G?CSF [Suspect]
     Active Substance: GRANULOCYTE COLONY-STIMULATING FACTOR NOS
     Dosage: TOTAL DOSE ADMINISTERED THIS COURSE (DOSE): 50 MCG
     Dates: end: 20200714
  24. CRIZOTINIB [Suspect]
     Active Substance: CRIZOTINIB
     Dosage: PER ROADMAP
     Dates: start: 20200205, end: 20200706
  25. DOXORUBICIN HCL [Suspect]
     Active Substance: DOXORUBICIN HYDROCHLORIDE
     Indication: NEOPLASM MALIGNANT
     Dosage: FIRST COURSE
     Dates: start: 20191217
  26. DOXORUBICIN HCL [Suspect]
     Active Substance: DOXORUBICIN HYDROCHLORIDE
     Dosage: LAST ADMINISTERED DATE
     Dates: end: 20200229
  27. CYCLOPHOSPHAMIDE. [Suspect]
     Active Substance: CYCLOPHOSPHAMIDE
     Dosage: 3000 MG, TOTAL DOSE ADMINISTERED THIS COURSE
     Dates: end: 20200712
  28. THIOTEPA. [Suspect]
     Active Substance: THIOTEPA
     Indication: NEOPLASM MALIGNANT
     Dosage: FIRST COURSE
     Dates: start: 20191217
  29. VP?16 [Suspect]
     Active Substance: ETOPOSIDE
     Indication: NEOPLASM MALIGNANT
     Dosage: FIRST COURSE
     Dates: start: 20191217
  30. MESNA. [Suspect]
     Active Substance: MESNA
     Dosage: 3750 MG, TOTAL DOSE ADMINISTERED THIS COURSE
     Dates: end: 20200712

REACTIONS (1)
  - Multiple organ dysfunction syndrome [Fatal]

NARRATIVE: CASE EVENT DATE: 20200715
